FAERS Safety Report 7777480-7 (Version None)
Quarter: 2011Q3

REPORT INFORMATION
  Report Type: 
  Country: None (occurrence: None)
  Receive Date: 20110926
  Receipt Date: 20110915
  Transmission Date: 20111222
  Serious: Yes (Hospitalization)
  Sender: FDA-Public Use
  Company Number: DE-NOVOPROD-335109

PATIENT

DRUGS (6)
  1. METFORMIN HCL [Concomitant]
     Indication: DIABETES MELLITUS
     Dosage: 1000 UNK, QD
     Route: 048
  2. VICTOZA [Suspect]
     Indication: TYPE 2 DIABETES MELLITUS
     Dosage: 6 MG, QD
     Route: 058
     Dates: end: 20110810
  3. ASPIRIN [Concomitant]
     Indication: CORONARY ARTERY DISEASE
     Dosage: 100 MG, QD
     Route: 048
  4. SIMVASTATIN [Concomitant]
     Indication: BLOOD CHOLESTEROL
     Dosage: 30 MG, QD
     Route: 048
  5. RAMIPRIL [Concomitant]
     Dosage: 2.5 MG, UNK
     Route: 048
  6. PREDNISONE [Concomitant]
     Indication: MUSCULOSKELETAL PAIN
     Dosage: 2.5 MG, UNK
     Route: 048

REACTIONS (1)
  - PANCREATITIS NECROTISING [None]
